FAERS Safety Report 12141129 (Version 1)
Quarter: 2016Q1

REPORT INFORMATION
  Report Type: Report from Study
  Country: US (occurrence: US)
  Receive Date: 20160303
  Receipt Date: 20160303
  Transmission Date: 20160526
  Serious: Yes (Hospitalization, Other)
  Sender: FDA-Public Use
  Company Number: US-GILEAD-2016-0200452

PATIENT
  Age: 42 Year
  Sex: Male

DRUGS (2)
  1. RIBAVIRIN. [Concomitant]
     Active Substance: RIBAVIRIN
     Indication: HEPATITIS C
  2. SOFOSBUVIR [Suspect]
     Active Substance: SOFOSBUVIR
     Indication: HEPATITIS C
     Dosage: 1 DF, QD
     Route: 048
     Dates: start: 201506, end: 201511

REACTIONS (14)
  - Wound infection staphylococcal [Unknown]
  - Dysgeusia [Unknown]
  - Hypogeusia [Unknown]
  - Condition aggravated [Unknown]
  - Ocular icterus [Unknown]
  - Decubitus ulcer [Recovering/Resolving]
  - Spider vein [Unknown]
  - Anaemia [Unknown]
  - Malnutrition [Unknown]
  - Weight decreased [Recovered/Resolved]
  - Paralysis [Not Recovered/Not Resolved]
  - General physical condition abnormal [Unknown]
  - Disturbance in attention [Unknown]
  - Gastrointestinal disorder [Unknown]

NARRATIVE: CASE EVENT DATE: 2015
